FAERS Safety Report 8257297-X (Version None)
Quarter: 2012Q2

REPORT INFORMATION
  Report Type: 
  Country: None (occurrence: None)
  Receive Date: 20120403
  Receipt Date: 20120322
  Transmission Date: 20120825
  Serious: Yes (Death, Hospitalization)
  Sender: FDA-Public Use
  Company Number: JP-TEVA-2011002089

PATIENT
  Sex: Male

DRUGS (27)
  1. PREGABALIN [Concomitant]
     Dates: start: 20110121
  2. GRANISETRON HCL [Concomitant]
     Dates: start: 20110119, end: 20110120
  3. BROTIZOLAM [Concomitant]
  4. BENDAMUSTINE [Suspect]
     Route: 042
     Dates: start: 20110525, end: 20110526
  5. BENDAMUSTINE [Suspect]
     Route: 042
     Dates: start: 20110621, end: 20110622
  6. OXYCODONE HCL [Concomitant]
     Dates: start: 20110213
  7. FAROPENEM SODIUM HYDRATE [Concomitant]
     Dates: start: 20101229, end: 20110104
  8. TRANEXAMIC ACID [Concomitant]
     Dates: start: 20110107, end: 20110130
  9. DEXAMETHASONE [Concomitant]
     Dates: start: 20110317
  10. LENOGRASTIM [Concomitant]
     Dates: start: 20101229, end: 20101231
  11. DEXAMETHASONE SODIUM PHOSPHATE [Concomitant]
     Dates: start: 20101227, end: 20110429
  12. BENDAMUSTINE [Suspect]
     Route: 042
     Dates: start: 20110119, end: 20110120
  13. OXYCODONE HCL [Concomitant]
     Dates: start: 20100124, end: 20100510
  14. ACYCLOVIR [Concomitant]
     Dates: start: 20110129, end: 20110211
  15. SULFAMETHOXAZOLE AND TRIMETHOPRIM [Concomitant]
  16. GRANISETRON HCL [Concomitant]
     Dates: start: 20101227, end: 20110429
  17. BENDAMUSTINE [Suspect]
     Indication: MANTLE CELL LYMPHOMA
     Route: 042
     Dates: start: 20101227, end: 20101228
  18. DICLOFENAC SODIUM [Concomitant]
  19. DORIPENEM HYDRATE [Concomitant]
     Dates: start: 20110117, end: 20110121
  20. BENDAMUSTINE [Suspect]
     Route: 042
     Dates: start: 20110428, end: 20110429
  21. OXYCODONE HCL [Concomitant]
     Dates: start: 20100511, end: 20110213
  22. BENDAMUSTINE [Suspect]
     Route: 042
     Dates: start: 20110719, end: 20110720
  23. ACYCLOVIR [Concomitant]
     Dates: start: 20101227, end: 20110211
  24. GRANISETRON HCL [Concomitant]
     Dates: start: 20110428, end: 20110429
  25. LENOGRASTIM [Concomitant]
     Dates: start: 20101229, end: 20101231
  26. BROTIZOLAM [Concomitant]
  27. DORIPENEM HYDRATE [Concomitant]
     Dates: start: 20101230, end: 20101230

REACTIONS (8)
  - FUNGAEMIA [None]
  - PLEURISY [None]
  - MANTLE CELL LYMPHOMA [None]
  - LYMPHOCYTE COUNT DECREASED [None]
  - NEUTROPHIL COUNT DECREASED [None]
  - PYREXIA [None]
  - STAPHYLOCOCCAL SEPSIS [None]
  - PLATELET COUNT DECREASED [None]
